FAERS Safety Report 8207821-8 (Version None)
Quarter: 2012Q1

REPORT INFORMATION
  Report Type: 
  Country: None (occurrence: None)
  Receive Date: 20120314
  Receipt Date: 20120305
  Transmission Date: 20120608
  Serious: Yes (Hospitalization)
  Sender: FDA-Public Use
  Company Number: JP-AMGEN-JPNCT2012015993

PATIENT
  Age: 69 Year
  Sex: Female
  Weight: 69 kg

DRUGS (20)
  1. PANITUMUMAB [Suspect]
     Indication: COLORECTAL CANCER
     Dosage: 6 MG/KG, Q2WK
     Route: 041
     Dates: start: 20101013, end: 20101013
  2. PANITUMUMAB [Suspect]
     Dosage: 6 MG/KG, Q2WK
     Route: 041
     Dates: start: 20110308, end: 20110308
  3. FLUOROURACIL [Suspect]
     Dosage: 4000 MG, Q2WK
     Route: 041
     Dates: start: 20101013, end: 20110823
  4. ANTIHISTAMINES [Concomitant]
     Indication: PROPHYLAXIS
     Dosage: UNK
     Route: 065
  5. PANITUMUMAB [Suspect]
     Dosage: 6 MG/KG, Q2WK
     Route: 041
     Dates: start: 20110201, end: 20110201
  6. APHTASOLON [Concomitant]
     Dosage: UNK
     Route: 062
  7. PANITUMUMAB [Suspect]
     Dosage: 6 MG/KG, Q2WK
     Route: 041
     Dates: start: 20110525, end: 20110525
  8. TOPOTECAN [Suspect]
     Indication: COLORECTAL CANCER
     Dosage: 240 MG, Q2WK
     Route: 041
     Dates: start: 20101013, end: 20110823
  9. SEROTONE [Concomitant]
     Dosage: UNK
     Route: 042
  10. PANITUMUMAB [Suspect]
     Dosage: 6 MG/KG, Q2WK
     Route: 041
     Dates: start: 20101214, end: 20101214
  11. SENNAL [Concomitant]
     Dosage: UNK
     Route: 048
  12. FLUOROURACIL [Suspect]
     Indication: COLORECTAL CANCER
     Route: 040
     Dates: start: 20101013, end: 20110823
  13. DECADRON [Concomitant]
     Dosage: UNK
     Route: 042
  14. PANITUMUMAB [Suspect]
     Dosage: 6 MG/KG, Q2WK
     Route: 041
     Dates: start: 20110419, end: 20110419
  15. PANITUMUMAB [Suspect]
     Dosage: 6 MG/KG, Q2WK
     Route: 041
     Dates: start: 20110823, end: 20110823
  16. ISOVORIN [Suspect]
     Indication: COLORECTAL CANCER
     Dosage: 325 MG, Q2WK
     Route: 041
     Dates: start: 20101013, end: 20110823
  17. ACETAMINOPHEN [Concomitant]
     Dosage: UNK
     Route: 048
  18. PANITUMUMAB [Suspect]
     Dosage: 6 MG/KG, Q2WK
     Route: 041
     Dates: start: 20101116, end: 20101116
  19. PANITUMUMAB [Suspect]
     Dosage: 6 MG/KG, Q2WK
     Route: 041
     Dates: start: 20110705, end: 20110705
  20. CORTICOSTEROIDS [Concomitant]
     Indication: PROPHYLAXIS
     Dosage: UNK
     Route: 065

REACTIONS (6)
  - BRADYCARDIA [None]
  - LOSS OF CONSCIOUSNESS [None]
  - DIARRHOEA [None]
  - CARDIAC DISORDER [None]
  - HYPOTENSION [None]
  - STOMATITIS [None]
